FAERS Safety Report 8263341-6 (Version None)
Quarter: 2012Q2

REPORT INFORMATION
  Report Type: 
  Country: None (occurrence: None)
  Receive Date: 20120405
  Receipt Date: 20120329
  Transmission Date: 20120825
  Serious: Yes (Other)
  Sender: FDA-Public Use
  Company Number: PHHY2011DK099544

PATIENT
  Sex: Male

DRUGS (3)
  1. METHOTREXATE [Suspect]
     Indication: RHEUMATOID ARTHRITIS
     Dosage: UNK
     Route: 030
     Dates: start: 20051129, end: 20051206
  2. METHOTREXATE [Suspect]
     Dates: end: 20070212
  3. METHOTREXATE [Suspect]
     Dates: end: 20060523

REACTIONS (10)
  - CEREBRAL THROMBOSIS [None]
  - HEMIPARESIS [None]
  - ATAXIA [None]
  - IRON DEFICIENCY [None]
  - SPINAL OSTEOARTHRITIS [None]
  - DIZZINESS [None]
  - HEMIPLEGIA [None]
  - GLIOSIS [None]
  - BALANCE DISORDER [None]
  - ANAEMIA [None]
